FAERS Safety Report 20708869 (Version 1)
Quarter: 2022Q2

REPORT INFORMATION
  Report Type: Spontaneous
  Country: PT (occurrence: PT)
  Receive Date: 20220414
  Receipt Date: 20220414
  Transmission Date: 20220720
  Serious: Yes (Other)
  Sender: FDA-Public Use
  Company Number: PT-STRIDES ARCOLAB LIMITED-2022SP003872

PATIENT
  Age: 7 Decade
  Sex: Female

DRUGS (1)
  1. OLANZAPINE [Suspect]
     Active Substance: OLANZAPINE
     Indication: Drug use disorder
     Dosage: 5 MILLIGRAM PER DAY
     Route: 065

REACTIONS (8)
  - Anxiety [Unknown]
  - Face oedema [Recovered/Resolved]
  - Visual impairment [Unknown]
  - Depressed mood [Unknown]
  - Mental disorder [Unknown]
  - Irritability [Unknown]
  - Hyponatraemia [Unknown]
  - Off label use [Unknown]
